FAERS Safety Report 9474802 (Version 1)
Quarter: 2013Q3

REPORT INFORMATION
  Report Type: Spontaneous
  Country: US (occurrence: US)
  Receive Date: 20130823
  Receipt Date: 20130823
  Transmission Date: 20140515
  Serious: No
  Sender: FDA-Public Use
  Company Number: US-009507513-1307USA006764

PATIENT
  Sex: 0

DRUGS (2)
  1. SAPHRIS [Suspect]
     Dosage: 2.5 MG, UNK
  2. DEPAKOTE [Concomitant]

REACTIONS (5)
  - Insomnia [Unknown]
  - Wrong technique in drug usage process [Unknown]
  - Depression [Recovering/Resolving]
  - Psychomotor hyperactivity [Unknown]
  - Anxiety [Unknown]
